FAERS Safety Report 22205237 (Version 2)
Quarter: 2023Q2

REPORT INFORMATION
  Report Type: Spontaneous
  Country: AU (occurrence: AU)
  Receive Date: 20230413
  Receipt Date: 20230517
  Transmission Date: 20230722
  Serious: Yes (Hospitalization, Other)
  Sender: FDA-Public Use
  Company Number: AU-ORGANON-O2304AUS000341

PATIENT
  Sex: Female

DRUGS (5)
  1. SINEMET CR [Suspect]
     Active Substance: CARBIDOPA\LEVODOPA
     Indication: Parkinson^s disease
     Dosage: SINEMET CR 250/50 QID (4 TIMES A DAY)
     Route: 048
  2. SINEMET [Suspect]
     Active Substance: CARBIDOPA\LEVODOPA
     Indication: Parkinson^s disease
     Dosage: IMMEDIATE RELASE 100/25, 5 TIMES PER DAY
     Route: 048
  3. ROTIGOTINE [Suspect]
     Active Substance: ROTIGOTINE
     Indication: Parkinson^s disease
     Dosage: 16MG A DAY (FORMULATION: PATCHES)
  4. RASAGILINE [Suspect]
     Active Substance: RASAGILINE
     Indication: Parkinson^s disease
     Dosage: AT NIGHT
  5. PRAMIPEXOLE [Suspect]
     Active Substance: PRAMIPEXOLE
     Indication: Parkinson^s disease
     Dosage: CONTROLLED RELEASE AT NIGHT

REACTIONS (5)
  - Hiatus hernia [Unknown]
  - Gastrointestinal necrosis [Unknown]
  - Obstruction gastric [Unknown]
  - Gastritis [Unknown]
  - Product use issue [Unknown]
